FAERS Safety Report 19184996 (Version 1)
Quarter: 2021Q2

REPORT INFORMATION
  Report Type: Spontaneous
  Country: US (occurrence: US)
  Receive Date: 20210427
  Receipt Date: 20210427
  Transmission Date: 20210717
  Serious: Yes (Other)
  Sender: FDA-Public Use
  Company Number: None

PATIENT
  Age: 19 Year
  Sex: Female
  Weight: 68.04 kg

DRUGS (1)
  1. HUMIRA [Suspect]
     Active Substance: ADALIMUMAB
     Indication: PSORIASIS
     Route: 058
     Dates: start: 20210421

REACTIONS (6)
  - Feeling hot [None]
  - Condition aggravated [None]
  - Pain [None]
  - Psoriasis [None]
  - Alopecia [None]
  - Rash pruritic [None]

NARRATIVE: CASE EVENT DATE: 20210427
